FAERS Safety Report 4852366-6 (Version None)
Quarter: 2005Q4

REPORT INFORMATION
  Report Type: 
  Country: None (occurrence: None)
  Receive Date: 20051209
  Receipt Date: 20051130
  Transmission Date: 20060501
  Serious: Yes (Hospitalization)
  Sender: FDA-Public Use
  Company Number: 2005-12-0002

PATIENT
  Age: 40 Year
  Sex: Male
  Weight: 75 kg

DRUGS (2)
  1. PEG-INTRON [Suspect]
     Indication: HEPATITIS C
     Dosage: 100 MCG QW; SUBCUTANEOUS
     Route: 058
     Dates: start: 20050405, end: 20051108
  2. REBETOL [Suspect]
     Dosage: 800 MG; ORAL
     Route: 048

REACTIONS (1)
  - ORAL NEOPLASM [None]
